FAERS Safety Report 8969367 (Version 1)
Quarter: 2012Q4

REPORT INFORMATION
  Report Type: 
  Country: US (occurrence: US)
  Receive Date: 20121218
  Receipt Date: 20121218
  Transmission Date: 20130627
  Serious: Yes (Disabling, Other)
  Sender: FDA-Public Use
  Company Number: US-BRISTOL-MYERS SQUIBB COMPANY-16292286

PATIENT
  Age: 51 Year
  Sex: Male

DRUGS (6)
  1. ABILIFY [Suspect]
     Indication: BIPOLAR DISORDER
     Dosage: Interrupted,5mg increased to 10mg then 15mg(3wks), decreased to 2.5mg daily, 2.5mg ong
  2. LITHIUM [Concomitant]
  3. SIMVASTATIN [Concomitant]
  4. FLOMAX [Concomitant]
  5. DOXYCYCLINE [Concomitant]
  6. ATIVAN [Concomitant]

REACTIONS (4)
  - Restlessness [Unknown]
  - Akathisia [Unknown]
  - Crying [Unknown]
  - Affect lability [Unknown]
